FAERS Safety Report 19663715 (Version 2)
Quarter: 2021Q3

REPORT INFORMATION
  Report Type: Report from Study
  Country: None (occurrence: CA)
  Receive Date: 20210806
  Receipt Date: 20210829
  Transmission Date: 20211014
  Serious: Yes (Death, Hospitalization)
  Sender: FDA-Public Use
  Company Number: CA-ABBVIE-21K-028-4026175-00

PATIENT
  Sex: Male
  Weight: 78 kg

DRUGS (1)
  1. RINVOQ [Suspect]
     Active Substance: UPADACITINIB
     Indication: RHEUMATOID ARTHRITIS
     Route: 048
     Dates: start: 20210324, end: 20210727

REACTIONS (2)
  - Interstitial lung disease [Fatal]
  - Malaise [Fatal]

NARRATIVE: CASE EVENT DATE: 2021
